FAERS Safety Report 7205412-9 (Version None)
Quarter: 2010Q4

REPORT INFORMATION
  Report Type: 
  Country: None (occurrence: None)
  Receive Date: 20101231
  Receipt Date: 20101216
  Transmission Date: 20110411
  Serious: Yes (Other)
  Sender: FDA-Public Use
  Company Number: PHHY2010FR89140

PATIENT
  Sex: Female

DRUGS (4)
  1. VALDOXAN [Interacting]
     Indication: BIPOLAR I DISORDER
     Dosage: 25 MG, QD
     Route: 048
  2. VALDOXAN [Interacting]
     Dosage: 50 MG, QD
     Route: 048
  3. TEGRETOL [Suspect]
     Dosage: 100 MG, QD
     Route: 048
  4. TEGRETOL [Interacting]
     Dosage: 200 MG, QD
     Route: 048

REACTIONS (3)
  - AKATHISIA [None]
  - DRUG INTERACTION [None]
  - MANIA [None]
